FAERS Safety Report 6572334-6 (Version None)
Quarter: 2010Q1

REPORT INFORMATION
  Report Type: 
  Country: None (occurrence: None)
  Receive Date: 20100205
  Receipt Date: 20100126
  Transmission Date: 20100710
  Serious: Yes (Other)
  Sender: FDA-Public Use
  Company Number: US-WATSON-2010-01142

PATIENT
  Age: 10 Year
  Sex: Male

DRUGS (11)
  1. METHYLPREDNISOLONE ACETATE [Suspect]
     Indication: GRAFT VERSUS HOST DISEASE
  2. PREDNISONE TAB [Suspect]
     Indication: CHRONIC MYELOID LEUKAEMIA
     Dosage: UNK
  3. ETOPOSIDE [Suspect]
     Indication: CHRONIC MYELOID LEUKAEMIA
  4. CYCLOSPORINE [Suspect]
     Indication: GRAFT VERSUS HOST DISEASE
  5. ELSPAR [Suspect]
     Indication: CHRONIC MYELOID LEUKAEMIA
  6. IFOSFAMIDE [Suspect]
     Indication: CHRONIC MYELOID LEUKAEMIA
  7. IMATINIB [Suspect]
     Indication: CHRONIC MYELOID LEUKAEMIA
  8. CYCLOPHOSPHAMIDE [Suspect]
     Indication: CHRONIC MYELOID LEUKAEMIA
  9. TACROLIMUS [Suspect]
     Indication: GRAFT VERSUS HOST DISEASE
  10. INFLIXIMAB [Suspect]
     Indication: GRAFT VERSUS HOST DISEASE
  11. MYCOPHENOLATE MOFETIL [Suspect]

REACTIONS (2)
  - BK VIRUS INFECTION [None]
  - NEPHROPATHY [None]
